FAERS Safety Report 23882276 (Version 1)
Quarter: 2024Q2

REPORT INFORMATION
  Report Type: Report from Study
  Country: US (occurrence: US)
  Receive Date: 20240522
  Receipt Date: 20240522
  Transmission Date: 20240715
  Serious: Yes (Other)
  Sender: FDA-Public Use
  Company Number: US-ABBVIE-5323831

PATIENT
  Age: 43 Year
  Sex: Female

DRUGS (3)
  1. HUMIRA [Suspect]
     Active Substance: ADALIMUMAB
     Indication: Rheumatoid arthritis
     Dosage: FORM STRENGTH: 40 MG, CITRATE FREE
     Route: 058
     Dates: start: 20230723
  2. HUMIRA [Suspect]
     Active Substance: ADALIMUMAB
     Route: 058
     Dates: start: 2023, end: 2023
  3. HUMIRA [Suspect]
     Active Substance: ADALIMUMAB
     Dosage: LAST ADMIN DATE: JUL 2023
     Route: 058
     Dates: start: 20230707

REACTIONS (7)
  - Rheumatoid arthritis [Recovered/Resolved]
  - Rheumatoid arthritis [Recovering/Resolving]
  - Injection site bruising [Recovering/Resolving]
  - Pain [Not Recovered/Not Resolved]
  - Hepatic cirrhosis [Not Recovered/Not Resolved]
  - Musculoskeletal stiffness [Unknown]
  - Arthropathy [Unknown]

NARRATIVE: CASE EVENT DATE: 20190101
